FAERS Safety Report 23836352 (Version 1)
Quarter: 2024Q2

REPORT INFORMATION
  Report Type: Spontaneous
  Country: CN (occurrence: CN)
  Receive Date: 20240509
  Receipt Date: 20240509
  Transmission Date: 20240716
  Serious: Yes (Other)
  Sender: FDA-Public Use
  Company Number: CN-PFIZER INC-PV202400059639

PATIENT
  Age: 59 Year
  Sex: Female
  Weight: 50.9 kg

DRUGS (3)
  1. EPIRUBICIN HYDROCHLORIDE [Suspect]
     Active Substance: EPIRUBICIN HYDROCHLORIDE
     Indication: Ovarian cancer
     Dosage: 80 MG, 1X/DAY
     Route: 041
     Dates: start: 20231209, end: 20231209
  2. IFOSFAMIDE [Suspect]
     Active Substance: IFOSFAMIDE
     Indication: Ovarian cancer
     Dosage: 2.5 G, 1X/DAY
     Route: 041
     Dates: start: 20231209, end: 20231211
  3. TISLELIZUMAB [Suspect]
     Active Substance: TISLELIZUMAB
     Indication: Ovarian cancer
     Dosage: 200 MG, 1X/DAY
     Route: 041
     Dates: start: 20231209, end: 20231209

REACTIONS (3)
  - Anal abscess [Recovering/Resolving]
  - Diarrhoea [Recovering/Resolving]
  - Proctalgia [Recovering/Resolving]

NARRATIVE: CASE EVENT DATE: 20231215
